FAERS Safety Report 5554273-2 (Version None)
Quarter: 2007Q4

REPORT INFORMATION
  Report Type: 
  Country: None (occurrence: None)
  Receive Date: 20071213
  Receipt Date: 20071128
  Transmission Date: 20080405
  Serious: Yes (Death, Other)
  Sender: FDA-Public Use
  Company Number: B0383950A

PATIENT
  Sex: Female

DRUGS (4)
  1. SEROXAT [Suspect]
     Route: 065
  2. PROTHIADEN [Concomitant]
  3. ZOLPIDEM TARTRATE [Concomitant]
     Dosage: 10MG AT NIGHT
  4. XANAX [Concomitant]
     Dosage: .5MG THREE TIMES PER DAY

REACTIONS (1)
  - COMPLETED SUICIDE [None]
